FAERS Safety Report 6626505-0 (Version None)
Quarter: 2010Q1

REPORT INFORMATION
  Report Type: 
  Country: None (occurrence: None)
  Receive Date: 20100310
  Receipt Date: 20100224
  Transmission Date: 20100710
  Serious: Yes (Other)
  Sender: FDA-Public Use
  Company Number: US-ELI_LILLY_AND_COMPANY-US201001003068

PATIENT
  Sex: Female

DRUGS (6)
  1. FORTEO [Suspect]
     Indication: OSTEOPOROSIS
     Dosage: 20 UG, DAILY (1/D)
     Dates: start: 20091213, end: 20100222
  2. CYMBALTA [Suspect]
     Indication: BIPOLAR I DISORDER
     Dosage: 120 MG, DAILY (1/D)
     Dates: start: 20080101
  3. TRAZODONE HCL [Concomitant]
  4. SEROQUEL [Concomitant]
  5. ABILIFY [Concomitant]
  6. LORAZEPAM [Concomitant]

REACTIONS (8)
  - DIZZINESS [None]
  - FALL [None]
  - HEAD INJURY [None]
  - LOSS OF CONSCIOUSNESS [None]
  - MEMORY IMPAIRMENT [None]
  - PERIORBITAL HAEMATOMA [None]
  - SKIN LACERATION [None]
  - VAGAL NERVE STIMULATOR IMPLANTATION [None]
